FAERS Safety Report 10422655 (Version 2)
Quarter: 2014Q3

REPORT INFORMATION
  Report Type: Spontaneous
  Country: GB (occurrence: GB)
  Receive Date: 20140902
  Receipt Date: 20140902
  Transmission Date: 20150326
  Serious: Yes (Death, Hospitalization, Other)
  Sender: FDA-Public Use
  Company Number: GB-AUROBINDO-AUR-APL-2014-04731

PATIENT
  Age: 78 Year
  Sex: Male

DRUGS (6)
  1. BISOPROLOL FUMARATE FILM-COATED TABLETS 3.75MG (BISOPROLOL) FILM-COATED TABLET, 3.75MG? [Suspect]
     Active Substance: BISOPROLOL FUMARATE
     Indication: CARDIAC FAILURE
     Dosage: 3.75 MG,ONCE A DAY,
     Route: 048
     Dates: start: 20110908, end: 20120715
  2. ENALAPRIL MALEATE TABLETS 2.5 MG [Suspect]
     Active Substance: ENALAPRIL MALEATE
     Dosage: UNK UNK,UNK,
     Route: 048
     Dates: start: 20120727, end: 20130825
  3. ENALAPRIL MALEATE TABLETS 2.5 MG [Suspect]
     Active Substance: ENALAPRIL MALEATE
     Dosage: UNK UNK,UNK,
     Route: 048
     Dates: start: 20120627, end: 20120715
  4. BISOPROLOL FUMARATE FILM-COATED TABLETS 3.75MG (BISOPROLOL) FILM-COATED TABLET, 3.75MG? [Suspect]
     Active Substance: BISOPROLOL FUMARATE
     Dosage: 1.25 MG,ONCE A DAY,
     Route: 048
     Dates: start: 20120718
  5. ENALAPRIL MALEATE TABLETS 2.5 MG [Suspect]
     Active Substance: ENALAPRIL MALEATE
     Indication: CARDIAC FAILURE CHRONIC
     Dosage: UNK UNK,UNK,
     Route: 048
     Dates: start: 20100615, end: 20120618
  6. ENALAPRIL MALEATE TABLETS 2.5 MG [Suspect]
     Active Substance: ENALAPRIL MALEATE
     Dosage: UNK UNK,UNK,
     Route: 065
     Dates: start: 20100427, end: 20100510

REACTIONS (18)
  - C-reactive protein increased [Not Recovered/Not Resolved]
  - Cardiomegaly [Not Recovered/Not Resolved]
  - Pyrexia [Not Recovered/Not Resolved]
  - Fatigue [Not Recovered/Not Resolved]
  - Decreased appetite [Not Recovered/Not Resolved]
  - Chest discomfort [Not Recovered/Not Resolved]
  - Respiratory tract infection [Not Recovered/Not Resolved]
  - Weight decreased [Not Recovered/Not Resolved]
  - Pulmonary oedema [Not Recovered/Not Resolved]
  - Varicella virus test positive [Not Recovered/Not Resolved]
  - Fall [Not Recovered/Not Resolved]
  - Rash [Not Recovered/Not Resolved]
  - Dyspnoea [Not Recovered/Not Resolved]
  - Blister [Not Recovered/Not Resolved]
  - Hypokinesia [Not Recovered/Not Resolved]
  - Depressed mood [Not Recovered/Not Resolved]
  - Infective exacerbation of bronchiectasis [Fatal]
  - Confusional state [Not Recovered/Not Resolved]

NARRATIVE: CASE EVENT DATE: 20120612
